FAERS Safety Report 23784736 (Version 1)
Quarter: 2024Q2

REPORT INFORMATION
  Report Type: Spontaneous
  Country: BR (occurrence: BR)
  Receive Date: 20240425
  Receipt Date: 20240425
  Transmission Date: 20240716
  Serious: Yes (Other)
  Sender: FDA-Public Use
  Company Number: BR-NAPPMUNDI-GBR-2024-0116028

PATIENT
  Age: 79 Year
  Sex: Female
  Weight: 70 kg

DRUGS (3)
  1. BUPRENORPHINE [Suspect]
     Active Substance: BUPRENORPHINE
     Indication: Spinal pain
     Dosage: 10 MILLIGRAM, WEEKLY
     Route: 062
     Dates: start: 20240307, end: 20240310
  2. VICTOZA [Concomitant]
     Active Substance: LIRAGLUTIDE
     Indication: Diabetes mellitus
     Dosage: ONCE A DAY
     Route: 058
  3. INSULIN LISPRO [Concomitant]
     Active Substance: INSULIN LISPRO
     Indication: Diabetes mellitus
     Dosage: WHEN NECESSARY
     Route: 058

REACTIONS (4)
  - Unresponsive to stimuli [Recovered/Resolved]
  - Sedation [Recovered/Resolved]
  - Disorientation [Recovered/Resolved]
  - Nervousness [Recovered/Resolved]

NARRATIVE: CASE EVENT DATE: 20240307
